FAERS Safety Report 7892425-7 (Version None)
Quarter: 2011Q4

REPORT INFORMATION
  Report Type: 
  Country: None (occurrence: None)
  Receive Date: 20111102
  Receipt Date: 20111021
  Transmission Date: 20120403
  Serious: Yes (Hospitalization, Other)
  Sender: FDA-Public Use
  Company Number: NSR_00298_2011

PATIENT
  Age: 17 Year
  Sex: Female

DRUGS (1)
  1. IBUPROFEN TABLETS [Suspect]
     Indication: PRODUCT USED FOR UNKNOWN INDICATION
     Dosage: (56 G, [70 PILLS])

REACTIONS (10)
  - UNRESPONSIVE TO STIMULI [None]
  - HEART RATE INCREASED [None]
  - ATAXIA [None]
  - INTENTIONAL OVERDOSE [None]
  - ACIDOSIS [None]
  - CONVULSION [None]
  - PUPILLARY REFLEX IMPAIRED [None]
  - HYPERNATRAEMIA [None]
  - TOXICITY TO VARIOUS AGENTS [None]
  - ENCEPHALOPATHY [None]
